FAERS Safety Report 4393150-X (Version None)
Quarter: 2004Q3

REPORT INFORMATION
  Report Type: 
  Country: None (occurrence: None)
  Receive Date: 20040702
  Receipt Date: 20040628
  Transmission Date: 20050211
  Serious: Yes (Other)
  Sender: FDA-Public Use
  Company Number: 2004-06-1953

PATIENT
  Sex: Female

DRUGS (4)
  1. TEMODAL [Suspect]
     Indication: GLIOMA
     Dosage: ORAL
     Route: 048
     Dates: start: 20040501, end: 20040501
  2. TEMODAL [Suspect]
     Indication: GLIOMA
     Dosage: ORAL
     Route: 048
     Dates: start: 20040501, end: 20040601
  3. TEMODAL [Suspect]
     Indication: GLIOMA
     Dosage: ORAL
     Route: 048
     Dates: start: 20040601, end: 20040601
  4. ANTIDEPRESSANTS (NOS) [Concomitant]

REACTIONS (3)
  - ALANINE AMINOTRANSFERASE INCREASED [None]
  - GAMMA-GLUTAMYLTRANSFERASE INCREASED [None]
  - PLATELET COUNT DECREASED [None]
